FAERS Safety Report 9922200 (Version 1)
Quarter: 2014Q1

REPORT INFORMATION
  Report Type: Spontaneous
  Country: GB (occurrence: GB)
  Receive Date: 20140225
  Receipt Date: 20140225
  Transmission Date: 20141002
  Serious: Yes (Other)
  Sender: FDA-Public Use
  Company Number: GB-WATSON-2014-02952

PATIENT
  Age: 50 Year
  Sex: Female

DRUGS (5)
  1. TAMOXIFEN (UNKNOWN) [Suspect]
     Indication: BREAST CANCER
     Dosage: 20 MG, UNK
     Route: 048
  2. THYROXINE [Concomitant]
     Indication: PRODUCT USED FOR UNKNOWN INDICATION
     Dosage: UNK
     Route: 065
  3. INDAPAMIDE [Concomitant]
     Indication: PRODUCT USED FOR UNKNOWN INDICATION
     Dosage: UNK
     Route: 065
  4. AMLODIPINE [Concomitant]
     Indication: PRODUCT USED FOR UNKNOWN INDICATION
     Dosage: UNK
     Route: 065
  5. LOSARTAN [Concomitant]
     Indication: PRODUCT USED FOR UNKNOWN INDICATION
     Dosage: UNK
     Route: 065

REACTIONS (7)
  - Hepatic steatosis [Unknown]
  - Alanine aminotransferase increased [Recovered/Resolved]
  - Musculoskeletal stiffness [Unknown]
  - Lethargy [Unknown]
  - Weight increased [Unknown]
  - Alopecia [Unknown]
  - Hot flush [Unknown]
